FAERS Safety Report 5569198-6 (Version None)
Quarter: 2007Q4

REPORT INFORMATION
  Report Type: 
  Country: None (occurrence: None)
  Receive Date: 20071220
  Receipt Date: 20070830
  Transmission Date: 20080405
  Serious: No
  Sender: FDA-Public Use
  Company Number: A0677784A

PATIENT
  Age: 71 Year
  Sex: Female

DRUGS (11)
  1. AVODART [Suspect]
     Indication: DRUG USE FOR UNKNOWN INDICATION
     Dosage: .5MG SINGLE DOSE
     Route: 048
     Dates: start: 20070830, end: 20070830
  2. TRANXENE [Concomitant]
  3. CYMBALTA [Concomitant]
  4. UROXATRAL [Concomitant]
  5. GABAPENTIN [Concomitant]
  6. NIACIN [Concomitant]
  7. FUROSEMIDE [Concomitant]
  8. LISINOPRIL [Concomitant]
  9. PERIOSTAT [Concomitant]
  10. ASPIRIN [Concomitant]
  11. INSULIN [Concomitant]

REACTIONS (3)
  - ACCIDENTAL EXPOSURE [None]
  - NECK PAIN [None]
  - VISUAL DISTURBANCE [None]
